FAERS Safety Report 7810760-5 (Version None)
Quarter: 2011Q4

REPORT INFORMATION
  Report Type: 
  Country: None (occurrence: None)
  Receive Date: 20111011
  Receipt Date: 20110926
  Transmission Date: 20120403
  Serious: Yes (Hospitalization)
  Sender: FDA-Public Use
  Company Number: TCI2011A05272

PATIENT
  Age: 65 Year
  Sex: Male

DRUGS (4)
  1. ACTOS [Suspect]
     Indication: BLOOD GLUCOSE DECREASED
     Dosage: 15 MG (15 MG,1 IN 1 D) PER ORAL
     Route: 048
  2. ASPIRIN [Concomitant]
  3. NORVASC [Concomitant]
  4. PRAVASTATIN [Concomitant]

REACTIONS (1)
  - BLADDER CANCER [None]
